FAERS Safety Report 10093091 (Version 1)
Quarter: 2014Q2

REPORT INFORMATION
  Report Type: Spontaneous
  Country: US (occurrence: US)
  Receive Date: 20140421
  Receipt Date: 20140421
  Transmission Date: 20141212
  Serious: No
  Sender: FDA-Public Use
  Company Number: US-SA-2013SA099456

PATIENT
  Age: 76 Year
  Sex: Female

DRUGS (7)
  1. ALLEGRA [Suspect]
     Indication: HYPERSENSITIVITY
     Route: 048
     Dates: start: 20130925
  2. KLONOPIN [Suspect]
     Dosage: ABOUT 5 YEARS
     Route: 065
  3. TOPROL XL [Suspect]
     Route: 065
  4. ASPIRIN [Suspect]
     Route: 065
  5. ZYRTEC [Concomitant]
     Route: 065
  6. CLARITIN [Concomitant]
     Route: 065
  7. MULTIVITAMINS [Concomitant]

REACTIONS (3)
  - Vision blurred [Not Recovered/Not Resolved]
  - Somnolence [Not Recovered/Not Resolved]
  - Drug interaction [Unknown]
